FAERS Safety Report 14531410 (Version 1)
Quarter: 2018Q1

REPORT INFORMATION
  Report Type: Spontaneous
  Country: US (occurrence: US)
  Receive Date: 20180213
  Receipt Date: 20180213
  Transmission Date: 20180509
  Serious: Yes (Disabling)
  Sender: FDA-Public Use
  Company Number: None

PATIENT
  Age: 71 Year
  Sex: Male
  Weight: 91.8 kg

DRUGS (13)
  1. SIMVASTATIN. [Concomitant]
     Active Substance: SIMVASTATIN
  2. LISINOPRIL. [Concomitant]
     Active Substance: LISINOPRIL
  3. MELATONIN [Concomitant]
     Active Substance: MELATONIN
  4. METFORMIN [Concomitant]
     Active Substance: METFORMIN HYDROCHLORIDE
  5. TESTOSTERONE CYPIONATE. [Suspect]
     Active Substance: TESTOSTERONE CYPIONATE
     Indication: HYPOGONADISM
     Dosage: ?          QUANTITY:100 INJECTION(S);OTHER FREQUENCY:EVERY 7 DAYS;?
     Route: 030
     Dates: start: 20171201, end: 20180125
  6. OMEPRAZOLE. [Concomitant]
     Active Substance: OMEPRAZOLE
  7. MONTELUKAST [Concomitant]
     Active Substance: MONTELUKAST SODIUM
  8. MULTIVITAMINS [Concomitant]
     Active Substance: VITAMINS
  9. PROVENTIL [Concomitant]
     Active Substance: ALBUTEROL
  10. ALBUTEROL. [Concomitant]
     Active Substance: ALBUTEROL
  11. GABAPENTIN. [Concomitant]
     Active Substance: GABAPENTIN
  12. NOVOLOG [Concomitant]
     Active Substance: INSULIN ASPART
  13. VITAMIN B12 [Concomitant]
     Active Substance: CYANOCOBALAMIN

REACTIONS (3)
  - Rash macular [None]
  - Rash [None]
  - Pruritus [None]

NARRATIVE: CASE EVENT DATE: 20180213
